FAERS Safety Report 24627120 (Version 1)
Quarter: 2024Q4

REPORT INFORMATION
  Report Type: Spontaneous
  Country: US (occurrence: US)
  Receive Date: 20241116
  Receipt Date: 20241116
  Transmission Date: 20250115
  Serious: Yes (Other)
  Sender: HETERO
  Company Number: US-HETERO-HET2024US04105

PATIENT
  Age: 73 Year
  Sex: Female

DRUGS (2)
  1. MYCOPHENOLATE MOFETIL [Suspect]
     Active Substance: MYCOPHENOLATE MOFETIL
     Indication: Pemphigoid
     Dosage: UNK
     Route: 065
  2. MYCOPHENOLATE MOFETIL [Suspect]
     Active Substance: MYCOPHENOLATE MOFETIL
     Indication: Ocular pemphigoid

REACTIONS (2)
  - Intraductal papillary mucinous neoplasm [Unknown]
  - Product use in unapproved indication [Unknown]
